FAERS Safety Report 8295603-0 (Version None)
Quarter: 2012Q2

REPORT INFORMATION
  Report Type: 
  Country: None (occurrence: None)
  Receive Date: 20120416
  Receipt Date: 20120402
  Transmission Date: 20120825
  Serious: Yes (Hospitalization, Other)
  Sender: FDA-Public Use
  Company Number: GER/GER/12/0023729

PATIENT
  Age: 1 Day
  Sex: Female
  Weight: 3.3 kg

DRUGS (1)
  1. LAMOTRIGINE [Suspect]
     Indication: PRODUCT USED FOR UNKNOWN INDICATION
     Dosage: 150 MG, 3 IN 1 D, TRANSPLACENTAL ; 500 MG, 1 IN 1 D, TRANSPLACENTAL
     Route: 064
     Dates: start: 20110218

REACTIONS (5)
  - CYANOSIS NEONATAL [None]
  - OXYGEN SATURATION DECREASED [None]
  - BRADYCARDIA NEONATAL [None]
  - INFANTILE APNOEIC ATTACK [None]
  - MATERNAL DRUGS AFFECTING FOETUS [None]
